FAERS Safety Report 12768245 (Version 2)
Quarter: 2016Q4

REPORT INFORMATION
  Report Type: Spontaneous
  Country: JP (occurrence: JP)
  Receive Date: 20160921
  Receipt Date: 20161110
  Transmission Date: 20170207
  Serious: Yes (Hospitalization, Other)
  Sender: FDA-Public Use
  Company Number: JP-GILEAD-2016-0233834

PATIENT
  Age: 73 Year
  Sex: Female

DRUGS (1)
  1. HARVONI [Suspect]
     Active Substance: LEDIPASVIR\SOFOSBUVIR
     Indication: PRODUCT USED FOR UNKNOWN INDICATION
     Dosage: 1 UNK, UNK
     Route: 048

REACTIONS (1)
  - Interstitial lung disease [Unknown]
